FAERS Safety Report 4854759-X (Version None)
Quarter: 2005Q4

REPORT INFORMATION
  Report Type: 
  Country: None (occurrence: None)
  Receive Date: 20051215
  Receipt Date: 20051206
  Transmission Date: 20060501
  Serious: Yes (Other)
  Sender: FDA-Public Use
  Company Number: JP-JPN-A20053011

PATIENT
  Age: 18 Year
  Sex: Male

DRUGS (1)
  1. ALKERAN [Suspect]
     Route: 042

REACTIONS (2)
  - MUCOUS MEMBRANE DISORDER [None]
  - VENOOCCLUSIVE LIVER DISEASE [None]
